FAERS Safety Report 17109060 (Version 8)
Quarter: 2020Q3

REPORT INFORMATION
  Report Type: Report from Study
  Country: US (occurrence: US)
  Receive Date: 20191203
  Receipt Date: 20200803
  Transmission Date: 20201102
  Serious: Yes (Other)
  Sender: FDA-Public Use
  Company Number: NVSC2019US024220

PATIENT
  Age: 67 Year
  Sex: Female

DRUGS (3)
  1. BEOVU [Suspect]
     Active Substance: BROLUCIZUMAB-DBLL
     Indication: NEOVASCULAR AGE-RELATED MACULAR DEGENERATION
     Dosage: 1 DF, QMO
     Route: 047
     Dates: start: 20191015
  2. BEOVU [Suspect]
     Active Substance: BROLUCIZUMAB-DBLL
     Dosage: 1 DF, QMO
     Route: 047
  3. BEOVU [Suspect]
     Active Substance: BROLUCIZUMAB-DBLL
     Dosage: 1 DF, QMO
     Route: 047
     Dates: start: 20191213

REACTIONS (22)
  - Back pain [Not Recovered/Not Resolved]
  - Epistaxis [Not Recovered/Not Resolved]
  - Memory impairment [Unknown]
  - Compression fracture [Unknown]
  - Feeling abnormal [Unknown]
  - Dysstasia [Unknown]
  - Gait disturbance [Unknown]
  - Vision blurred [Recovering/Resolving]
  - Vitreous floaters [Unknown]
  - Headache [Recovering/Resolving]
  - General physical health deterioration [Unknown]
  - Hepatic cirrhosis [Unknown]
  - Disturbance in attention [Unknown]
  - Visual impairment [Unknown]
  - Weight decreased [Unknown]
  - Ocular hyperaemia [Recovering/Resolving]
  - Blood pressure increased [Not Recovered/Not Resolved]
  - Polyuria [Not Recovered/Not Resolved]
  - Cough [Unknown]
  - Vitreous floaters [Recovered/Resolved]
  - Pain [Unknown]
  - Temperature intolerance [Unknown]

NARRATIVE: CASE EVENT DATE: 201909
